FAERS Safety Report 9526545 (Version 1)
Quarter: 2013Q1

REPORT INFORMATION
  Report Type: Spontaneous
  Country: US (occurrence: None)
  Receive Date: 20130305
  Receipt Date: 20130305
  Transmission Date: 20140127
  Serious: Yes (Other)
  Sender: FDA-Public Use
  Company Number: 163-21880-12031265

PATIENT
  Age: 63 Year
  Sex: Female

DRUGS (23)
  1. REVLIMID (LENALIDOMIDE) (CAPSULES) [Suspect]
     Dates: start: 20100413
  2. MAGNESIUM CITRATE (MAGNESIUM CITRATE) [Concomitant]
  3. ZOLEDRONATE (ZOLEDRONIC ACID) [Concomitant]
  4. ALEVE (NAPROXEN SODIUM) [Concomitant]
  5. CLARITIN (LORATADINE) (TABLETS) [Concomitant]
  6. FOLIC ACID (FOLIC ACID) (TABLETS) [Concomitant]
  7. GARLIC (GARLIC) (TABLETS) [Concomitant]
  8. IRON (IRON) [Concomitant]
  9. LIDODERM (LIDOCAINE) [Concomitant]
  10. LISINOPRIL (LISINOPRIL) [Concomitant]
  11. MAGOX (MAGNESIUM OXIDE) (CHEWABLE TABLETS) [Concomitant]
  12. METAMUCIL (METAMUCIL ^PROCTER + GAMBLE^) [Concomitant]
  13. MULTIVITAMIN (MULTIVITAMINS) (TABLETS) [Concomitant]
  14. NEXIUM (EOSMEPRAZOLE) (CAPSULES) [Concomitant]
  15. OMEGA-3 (OMEGA-3 TRIGLYCERIDES) (CAPSULES) [Concomitant]
  16. PROPOXYPHENE HCL/ACETAMINOPHEN (APOREX) (CAPSULES) [Concomitant]
  17. SYNTHROID (LEVOTHYROXINE SODIUM) [Concomitant]
  18. ZOMETA (ZOLEDRONIC ACID) [Concomitant]
  19. DIPHENHYDRAMINE HCL (DIPHENHYDRAMINE HYDROCHLORIDE) [Concomitant]
  20. HYDROCORTISONE SODIUM SUCCINATE (HYDROCORTISONE SODIUM SUCCINATE) [Concomitant]
  21. VALTREX (VALACICLOVIR HYDROCHLORIDE) [Concomitant]
  22. BACTRIM (BACTRIM) (SULFAMETHOXAZOLE, TRIMETHOPRIM) [Concomitant]
  23. BABY ASPIRIN (ACETYLSALICYCLIC ACID) [Concomitant]

REACTIONS (1)
  - Herpes zoster [None]
